FAERS Safety Report 12213269 (Version 7)
Quarter: 2016Q4

REPORT INFORMATION
  Report Type: Report from Study
  Country: CA (occurrence: CA)
  Receive Date: 20160328
  Receipt Date: 20161228
  Transmission Date: 20170207
  Serious: Yes (Other)
  Sender: FDA-Public Use
  Company Number: PHHY2013CA114913

PATIENT
  Age: 80 Year
  Sex: Female

DRUGS (6)
  1. ZOMETA [Suspect]
     Active Substance: ZOLEDRONIC ACID
     Dosage: 3 MG, QMO, EVERY 4 WEEKS
     Route: 042
     Dates: start: 20140228, end: 20141201
  2. HEPARIN [Concomitant]
     Active Substance: HEPARIN SODIUM
     Indication: PRODUCT USED FOR UNKNOWN INDICATION
     Dosage: 5 ML, 100 UNIT PER ML
     Route: 065
  3. ZOMETA [Suspect]
     Active Substance: ZOLEDRONIC ACID
     Dosage: 3 MG, Q3MO
     Route: 042
     Dates: start: 20150707
  4. ZOMETA [Suspect]
     Active Substance: ZOLEDRONIC ACID
     Indication: BREAST CANCER
     Dosage: 3 MG, QMO, EVERY 4 WEEKS
     Route: 042
     Dates: start: 20130618, end: 20131206
  5. ZOMETA [Suspect]
     Active Substance: ZOLEDRONIC ACID
     Dosage: 4 MG, QMO, EVERY 4 WEEKS
     Route: 042
     Dates: start: 20140103, end: 20140131
  6. ZOMETA [Suspect]
     Active Substance: ZOLEDRONIC ACID
     Dosage: 3 MG, EVERY 6 WEEKS
     Route: 042
     Dates: start: 20150126, end: 20150407

REACTIONS (12)
  - Lower respiratory tract infection [Recovered/Resolved]
  - Dyspnoea [Unknown]
  - Arthritis infective [Unknown]
  - Depressed mood [Unknown]
  - Blister [Unknown]
  - Blood pressure systolic increased [Unknown]
  - Neoplasm [Unknown]
  - Bone neoplasm [Unknown]
  - Malaise [Unknown]
  - Pneumonia [Unknown]
  - Inappropriate schedule of drug administration [Unknown]
  - Swelling [Unknown]

NARRATIVE: CASE EVENT DATE: 20140625
